FAERS Safety Report 14462333 (Version 2)
Quarter: 2018Q2

REPORT INFORMATION
  Report Type: Report from Study
  Country: JP (occurrence: JP)
  Receive Date: 20180130
  Receipt Date: 20180426
  Transmission Date: 20180711
  Serious: Yes (Other)
  Sender: FDA-Public Use
  Company Number: JP-COLLEGIUM PHARMACEUTICAL, INC.-JP-2018DEP000164

PATIENT
  Age: 86 Year
  Sex: Male
  Weight: 56 kg

DRUGS (3)
  1. OXIFAST [Concomitant]
     Active Substance: OXYCODONE
     Indication: CANCER PAIN
     Dosage: 10 MG, QD
     Dates: start: 20171002, end: 20171002
  2. TAPENTADOL HYDROCHLORIDE [Suspect]
     Active Substance: TAPENTADOL HYDROCHLORIDE
     Indication: CANCER PAIN
     Dosage: 50 MG, BID
     Route: 048
     Dates: start: 20171003, end: 20171022
  3. OSPAIN [Concomitant]
     Active Substance: ETODOLAC
     Indication: CANCER PAIN
     Dosage: UNK
     Dates: start: 20170928, end: 20171025

REACTIONS (1)
  - Delirium [Unknown]

NARRATIVE: CASE EVENT DATE: 201710
